FAERS Safety Report 9472503 (Version 2)
Quarter: 2013Q3

REPORT INFORMATION
  Report Type: Spontaneous
  Country: JP (occurrence: JP)
  Receive Date: 20130823
  Receipt Date: 20130827
  Transmission Date: 20140515
  Serious: Yes (Other)
  Sender: FDA-Public Use
  Company Number: PHHY2013JP090303

PATIENT
  Age: 49 Year
  Sex: Female

DRUGS (1)
  1. FTY 720 [Suspect]
     Route: 048

REACTIONS (6)
  - Neuromyelitis optica [Unknown]
  - Altered state of consciousness [Unknown]
  - Hemisensory neglect [Unknown]
  - Aphasia [Unknown]
  - Hemiparesis [Unknown]
  - Concomitant disease aggravated [Unknown]
